FAERS Safety Report 6058509-3 (Version None)
Quarter: 2009Q1

REPORT INFORMATION
  Report Type: 
  Country: None (occurrence: None)
  Receive Date: 20090128
  Receipt Date: 20090112
  Transmission Date: 20090719
  Serious: Yes (Life-Threatening, Hospitalization)
  Sender: FDA-Public Use
  Company Number: 2009S1000662

PATIENT
  Age: 41 Year
  Sex: Male

DRUGS (5)
  1. BISOPROLOL (BISOPROLOL) [Suspect]
     Indication: HYPERTENSION
     Dosage: 5 MG; DAILY; ORAL
     Route: 048
     Dates: start: 20080320
  2. ACETYLSALICYLIC ACID SRT [Concomitant]
  3. ATACAND [Concomitant]
  4. PANTOZOL [Concomitant]
  5. UNIMAX [Concomitant]

REACTIONS (1)
  - TACHYCARDIA [None]
